FAERS Safety Report 6449663-X (Version None)
Quarter: 2009Q4

REPORT INFORMATION
  Report Type: 
  Country: None (occurrence: None)
  Receive Date: 20091120
  Receipt Date: 20091112
  Transmission Date: 20100525
  Serious: Yes (Hospitalization)
  Sender: FDA-Public Use
  Company Number: PHHY2009IT50227

PATIENT
  Age: 84 Year
  Sex: Female

DRUGS (5)
  1. RIVASTIGMINE [Suspect]
     Indication: DEMENTIA ALZHEIMER'S TYPE
     Dosage: 4.6 MG 24 HOURLY
     Route: 062
  2. RIVASTIGMINE [Suspect]
     Dosage: 9.5 MG PER 24 HOURLY
  3. RAMIPRIL [Concomitant]
     Dosage: 2.5MG DAILY
  4. ASPIRIN [Concomitant]
     Dosage: 100MG DAILY
  5. VALPROIC ACID [Concomitant]
     Dosage: 150MG DAILY

REACTIONS (8)
  - ABDOMINAL DISTENSION [None]
  - ASTHENIA [None]
  - FATIGUE [None]
  - HEPATITIS CHOLESTATIC [None]
  - MIXED LIVER INJURY [None]
  - OCULAR ICTERUS [None]
  - RASH [None]
  - URINE COLOUR ABNORMAL [None]
